FAERS Safety Report 25604609 (Version 1)
Quarter: 2025Q3

REPORT INFORMATION
  Report Type: Spontaneous
  Country: US (occurrence: US)
  Receive Date: 20250725
  Receipt Date: 20250725
  Transmission Date: 20251020
  Serious: Yes (Death)
  Sender: TEVA
  Company Number: US-TEVA-VS-3352778

PATIENT
  Age: 64 Year
  Sex: Male

DRUGS (1)
  1. AUSTEDO [Suspect]
     Active Substance: DEUTETRABENAZINE
     Indication: Huntington^s disease
     Dosage: 3 TABLETS IN THE MORNING AND 4 ?TABLETS IN THE EVENING
     Route: 065

REACTIONS (2)
  - Death [Fatal]
  - Product use issue [Unknown]
